FAERS Safety Report 7028073-0 (Version None)
Quarter: 2010Q4

REPORT INFORMATION
  Report Type: 
  Country: None (occurrence: None)
  Receive Date: 20101005
  Receipt Date: 20100928
  Transmission Date: 20110411
  Serious: No
  Sender: FDA-Public Use
  Company Number: US-B.I. PHARMACEUTICALS,INC./RIDGEFIELD-2010-BP-11121BP

PATIENT
  Age: 6 Year
  Sex: Male

DRUGS (1)
  1. ZANTAC 75 [Suspect]

REACTIONS (1)
  - INCORRECT DRUG ADMINISTRATION DURATION [None]
